FAERS Safety Report 7450429-2 (Version None)
Quarter: 2011Q2

REPORT INFORMATION
  Report Type: 
  Country: None (occurrence: None)
  Receive Date: 20110429
  Receipt Date: 20110429
  Transmission Date: 20111010
  Serious: Yes (Hospitalization)
  Sender: FDA-Public Use
  Company Number: None

PATIENT
  Age: 15 Year
  Sex: Female
  Weight: 55.8 kg

DRUGS (2)
  1. ORTHO-CEPT [Suspect]
     Indication: MENSTRUATION IRREGULAR
     Dosage: 1 TABLET DAILY PO  4 MONTHS PRIOR TO EVENT
     Route: 048
  2. ORTHO-CEPT [Suspect]
     Indication: ORAL CONTRACEPTION
     Dosage: 1 TABLET DAILY PO  4 MONTHS PRIOR TO EVENT
     Route: 048

REACTIONS (2)
  - DEEP VEIN THROMBOSIS [None]
  - PULMONARY EMBOLISM [None]
